FAERS Safety Report 19268402 (Version 1)
Quarter: 2021Q2

REPORT INFORMATION
  Report Type: Spontaneous
  Country: US (occurrence: US)
  Receive Date: 20210518
  Receipt Date: 20210518
  Transmission Date: 20210717
  Serious: No
  Sender: FDA-Public Use
  Company Number: US-SA-2021SA128288

PATIENT
  Age: 28 Year
  Sex: Female

DRUGS (1)
  1. ENOXAPARIN SODIUM. [Suspect]
     Active Substance: ENOXAPARIN SODIUM
     Indication: PULMONARY EMBOLISM
     Dosage: DRUG INTERVAL DOSAGE : ONCE NIGHTLY DRUG TREATMENT DURATION: 12 WEEKS

REACTIONS (2)
  - Product storage error [Unknown]
  - Exposure during pregnancy [Unknown]
